FAERS Safety Report 11472677 (Version 1)
Quarter: 2015Q3

REPORT INFORMATION
  Report Type: Report from Study
  Country: US (occurrence: US)
  Receive Date: 20150908
  Receipt Date: 20150908
  Transmission Date: 20151125
  Serious: Yes (Other)
  Sender: FDA-Public Use
  Company Number: US-GILEAD-2015-0165939

PATIENT
  Age: 53 Year
  Sex: Female
  Weight: 93.42 kg

DRUGS (18)
  1. GABAPENTIN. [Concomitant]
     Active Substance: GABAPENTIN
     Dosage: 600 MG, TID
     Route: 048
  2. LOSARTAN POTASSIUM. [Concomitant]
     Active Substance: LOSARTAN POTASSIUM
     Dosage: 50 MG, QD
     Route: 048
     Dates: start: 20140520
  3. NITROSTAT [Concomitant]
     Active Substance: NITROGLYCERIN
     Indication: CHEST PAIN
     Dosage: 0.4 MG, PRN
     Route: 060
     Dates: start: 20140417
  4. RANOLAZINE [Suspect]
     Active Substance: RANOLAZINE
     Indication: ANGINA PECTORIS
     Dosage: 500 MG, BID
     Route: 048
     Dates: start: 201212
  5. PLAVIX [Concomitant]
     Active Substance: CLOPIDOGREL BISULFATE
     Dosage: 75 MG, QD
     Route: 048
  6. METOPROLOL TARTRATE. [Concomitant]
     Active Substance: METOPROLOL TARTRATE
     Dosage: 50 MG, BID
     Route: 048
  7. VITAMIN B [Concomitant]
     Active Substance: VITAMIN B
     Dosage: 1 DF, QD
     Route: 048
  8. AMLODIPINE BESYLATE. [Concomitant]
     Active Substance: AMLODIPINE BESYLATE
     Indication: BLOOD PRESSURE MEASUREMENT
     Dosage: 5 MG, QD
     Route: 048
     Dates: start: 20120629
  9. CLONIDINE HCL [Concomitant]
     Active Substance: CLONIDINE HYDROCHLORIDE
     Dosage: 0.2 MG, TID
     Route: 048
  10. LASIX [Concomitant]
     Active Substance: FUROSEMIDE
     Dosage: 40 MG, QD
     Route: 048
  11. JANUVIA [Concomitant]
     Active Substance: SITAGLIPTIN PHOSPHATE
     Dosage: 50 MG, QD
     Route: 048
  12. HYDROXYZINE PAMOATE. [Concomitant]
     Active Substance: HYDROXYZINE PAMOATE
     Dosage: 50 MG, QHS
     Route: 048
     Dates: start: 20130102
  13. HYDROXYZINE PAMOATE. [Concomitant]
     Active Substance: HYDROXYZINE PAMOATE
     Dosage: 25 MG, PRN
     Route: 048
  14. SIMVASTATIN. [Concomitant]
     Active Substance: SIMVASTATIN
     Dosage: 20 MG, QD
     Route: 048
  15. VISTARIL [Concomitant]
     Active Substance: HYDROXYZINE PAMOATE
  16. ASPIRIN                            /00002701/ [Concomitant]
     Active Substance: ASPIRIN
     Dosage: 325 MG, QD
     Route: 048
  17. DICLOFENAC SODIUM. [Concomitant]
     Active Substance: DICLOFENAC SODIUM
     Dosage: 75 MG, BID
     Route: 048
  18. LANTUS [Concomitant]
     Active Substance: INSULIN GLARGINE
     Dosage: 20 DF, QHS
     Route: 058
     Dates: start: 20130503

REACTIONS (6)
  - Drug dose omission [Unknown]
  - Skin tightness [Unknown]
  - Wrong technique in product usage process [Unknown]
  - Abdominal pain upper [Unknown]
  - Coronary arterial stent insertion [Unknown]
  - Chest discomfort [Unknown]

NARRATIVE: CASE EVENT DATE: 201404
